FAERS Safety Report 14392625 (Version 1)
Quarter: 2018Q1

REPORT INFORMATION
  Report Type: Spontaneous
  Country: GB (occurrence: GB)
  Receive Date: 20180116
  Receipt Date: 20180116
  Transmission Date: 20180509
  Serious: Yes (Hospitalization)
  Sender: FDA-Public Use
  Company Number: GB-FRESENIUS KABI-FK201800481

PATIENT
  Age: 125 Month

DRUGS (2)
  1. MELPHALAN (MANUFACTURER UNKNOWN) [Suspect]
     Active Substance: MELPHALAN
     Indication: RETINOBLASTOMA
     Route: 013
  2. TOPOTECAN [Concomitant]
     Active Substance: TOPOTECAN HYDROCHLORIDE
     Indication: RETINOBLASTOMA
     Route: 065

REACTIONS (4)
  - Eyelid ptosis [Unknown]
  - Product use in unapproved indication [Unknown]
  - Retinogram abnormal [Unknown]
  - Product use issue [Unknown]
